FAERS Safety Report 14241134 (Version 16)
Quarter: 2020Q3

REPORT INFORMATION
  Report Type: Spontaneous
  Country: US (occurrence: US)
  Receive Date: 20171130
  Receipt Date: 20200923
  Transmission Date: 20201102
  Serious: No
  Sender: FDA-Public Use
  Company Number: US-PFIZER INC-2017512800

PATIENT
  Age: 37 Year
  Sex: Female
  Weight: 70 kg

DRUGS (9)
  1. LYRICA [Suspect]
     Active Substance: PREGABALIN
     Indication: PHANTOM LIMB SYNDROME
     Dosage: 200 MG, AS NEEDED (5 TIMES PER DAY AS NEEDED)
     Route: 048
  2. LISINOPRIL. [Concomitant]
     Active Substance: LISINOPRIL
     Indication: HYPERTENSION
     Dosage: UNK, 2X/DAY
     Route: 048
     Dates: start: 1991
  3. LYRICA [Suspect]
     Active Substance: PREGABALIN
     Indication: URTICARIAL VASCULITIS
  4. LYRICA [Suspect]
     Active Substance: PREGABALIN
     Indication: NEUROPATHY PERIPHERAL
     Dosage: 100 MG, 3X/DAY
     Route: 048
     Dates: start: 200508
  5. LYRICA [Suspect]
     Active Substance: PREGABALIN
     Indication: VASCULITIS NECROTISING
  6. PREMARIN [Concomitant]
     Active Substance: ESTROGENS, CONJUGATED
     Indication: HORMONE REPLACEMENT THERAPY
     Dosage: 0.625 MG, 1X/DAY
     Route: 048
     Dates: start: 199912
  7. LYRICA [Suspect]
     Active Substance: PREGABALIN
     Indication: HEADACHE
     Dosage: 200 MG (1 CAPSULE 5 TIMES PER DAY)
     Route: 048
     Dates: start: 20181205
  8. LYRICA [Suspect]
     Active Substance: PREGABALIN
     Indication: NERVE INJURY
     Dosage: 1000 MG, DAILY (200MG CAPSULES, 5 TIMES A DAY/1 (ONE) CAPSULE FIVE TIMES PER DAY)
     Route: 048
  9. LYRICA [Suspect]
     Active Substance: PREGABALIN
     Indication: NEURALGIA
     Dosage: 1000 MG, DAILY (200 MG, 1 CAPSULE FIVE TIMES PER DAY)
     Route: 048
     Dates: start: 20200516

REACTIONS (3)
  - Nasopharyngitis [Not Recovered/Not Resolved]
  - Weight increased [Not Recovered/Not Resolved]
  - Prescribed overdose [Unknown]

NARRATIVE: CASE EVENT DATE: 200510
